FAERS Safety Report 9378283 (Version 1)
Quarter: 2013Q3

REPORT INFORMATION
  Report Type: Spontaneous
  Country: FR (occurrence: FR)
  Receive Date: 20130701
  Receipt Date: 20130701
  Transmission Date: 20140515
  Serious: Yes (Hospitalization)
  Sender: FDA-Public Use
  Company Number: FR-B.I. PHARMACEUTICALS,INC./RIDGEFIELD-2013-FF-01761FF

PATIENT
  Age: 80 Year
  Sex: Female

DRUGS (6)
  1. MICARDIS [Suspect]
     Dosage: 40 MG
     Route: 048
     Dates: start: 2006, end: 20130405
  2. LASILIX [Concomitant]
     Dosage: 80 MG
     Route: 048
  3. ACEBUTOLOL HYDROCHLORIDE [Concomitant]
     Dosage: 400 MG
     Route: 048
  4. INEGY [Concomitant]
     Dosage: 10MG/40MGX1 DAILY
     Route: 048
  5. EUPANTOL [Concomitant]
     Dosage: 40 MG
     Route: 048
  6. PLAVIX [Concomitant]
     Dosage: 75 MG
     Route: 048

REACTIONS (1)
  - Renal failure acute [Recovered/Resolved]
